FAERS Safety Report 18577960 (Version 1)
Quarter: 2020Q4

REPORT INFORMATION
  Report Type: Report from Study
  Country: FR (occurrence: FR)
  Receive Date: 20201204
  Receipt Date: 20201204
  Transmission Date: 20210114
  Serious: Yes (Life-Threatening)
  Sender: FDA-Public Use
  Company Number: FR-GLAXOSMITHKLINE-FR2020GSK238061

PATIENT
  Age: 61 Year
  Sex: Female
  Weight: 81 kg

DRUGS (14)
  1. DOSTARLIMAB [Suspect]
     Active Substance: DOSTARLIMAB
     Dosage: 1000 MG
     Dates: start: 20200414, end: 20200414
  2. NIRAPARIB [Suspect]
     Active Substance: NIRAPARIB
     Dosage: 200 MG, QD
     Dates: start: 20200602
  3. CARBOPLATIN. [Suspect]
     Active Substance: CARBOPLATIN
     Dosage: UNK, Z (5 AUC,EVERY 3 WEEKS)
     Route: 042
     Dates: start: 20190918, end: 20190918
  4. PACLITAXEL. [Suspect]
     Active Substance: PACLITAXEL
     Dosage: 306 MG, Z (EVERY 3 WEEKS)
     Route: 042
     Dates: start: 20190917, end: 20190918
  5. DOCETAXEL. [Concomitant]
     Active Substance: DOCETAXEL
  6. CARBOPLATIN. [Suspect]
     Active Substance: CARBOPLATIN
     Dosage: UNK, Z (5 AUC,EVERY 4 WEEKS)
     Route: 042
     Dates: start: 20200623, end: 20200623
  7. CAELYX [Concomitant]
     Active Substance: DOXORUBICIN HYDROCHLORIDE
     Indication: OVARIAN CANCER
     Dosage: 30 MG/M2, Z (EVERY 4 WEEKS)
     Route: 042
     Dates: start: 20200623
  8. DOSTARLIMAB [Suspect]
     Active Substance: DOSTARLIMAB
     Indication: OVARIAN CANCER
     Dosage: 500 MG
     Dates: start: 20190612, end: 20190612
  9. CARBOPLATIN. [Suspect]
     Active Substance: CARBOPLATIN
     Indication: OVARIAN CANCER
     Dosage: UNK, Z (5 AUC,EVERY 3 WEEKS)
     Route: 042
     Dates: start: 20190520, end: 20190520
  10. PACLITAXEL. [Suspect]
     Active Substance: PACLITAXEL
     Indication: OVARIAN CANCER
     Dosage: 324 MG,  Z (EVERY 3 WEEKS)
     Route: 042
     Dates: start: 20190520, end: 20190520
  11. BEVACIZUMAB. [Suspect]
     Active Substance: BEVACIZUMAB
     Indication: OVARIAN CANCER
     Dosage: 7.5 MG/KG, Z (EVERY 3 WEEKS)
     Route: 042
     Dates: start: 20190520, end: 20190520
  12. BEVACIZUMAB. [Suspect]
     Active Substance: BEVACIZUMAB
     Dosage: 500 MG/KG, Z (EVERY 3 WEEKS)
     Route: 042
     Dates: start: 20200512, end: 20200512
  13. CISPLATIN. [Concomitant]
     Active Substance: CISPLATIN
  14. NIRAPARIB [Suspect]
     Active Substance: NIRAPARIB
     Indication: OVARIAN CANCER
     Dosage: 200 MG, QD
     Dates: start: 20191010

REACTIONS (1)
  - Myelodysplastic syndrome [Not Recovered/Not Resolved]

NARRATIVE: CASE EVENT DATE: 20201110
